FAERS Safety Report 9315417 (Version 1)
Quarter: 2013Q2

REPORT INFORMATION
  Report Type: Spontaneous
  Country: US (occurrence: US)
  Receive Date: 20130529
  Receipt Date: 20130529
  Transmission Date: 20140414
  Serious: Yes (Other)
  Sender: FDA-Public Use
  Company Number: US-PFIZER INC-2013160183

PATIENT
  Age: 53 Year
  Sex: Female
  Weight: 86.17 kg

DRUGS (2)
  1. CELEBREX [Suspect]
     Indication: RHEUMATOID ARTHRITIS
     Dosage: 200 MG, 2X/DAY
     Dates: start: 1999
  2. CELEBREX [Suspect]
     Indication: FIBROMYALGIA
     Dosage: 100 MG, 4X/DAY

REACTIONS (5)
  - Heart valve stenosis [Unknown]
  - Addison^s disease [Unknown]
  - Dyspnoea [Unknown]
  - Weight decreased [Unknown]
  - Skin disorder [Unknown]
